FAERS Safety Report 11506186 (Version 1)
Quarter: 2015Q3

REPORT INFORMATION
  Report Type: Spontaneous
  Country: US (occurrence: US)
  Receive Date: 20150915
  Receipt Date: 20150915
  Transmission Date: 20151125
  Serious: No
  Sender: FDA-Public Use
  Company Number: US-ROCHE-775475

PATIENT
  Sex: Female

DRUGS (4)
  1. PEGASYS [Suspect]
     Active Substance: PEGINTERFERON ALFA-2A
     Indication: HEPATITIS C
     Dosage: FORM: PRE-FILLED SYRINGE
     Route: 058
  2. LORAZEPAM. [Concomitant]
     Active Substance: LORAZEPAM
     Route: 065
  3. GABAPENTIN. [Concomitant]
     Active Substance: GABAPENTIN
     Route: 065
  4. COPEGUS [Suspect]
     Active Substance: RIBAVIRIN
     Indication: HEPATITIS C
     Dosage: DAILY
     Route: 065

REACTIONS (8)
  - Pyrexia [Unknown]
  - Pain [Unknown]
  - Oropharyngeal pain [Unknown]
  - Dyspnoea [Unknown]
  - Headache [Unknown]
  - Vomiting [Unknown]
  - Nausea [Unknown]
  - Stomatitis [Unknown]
